FAERS Safety Report 5391415-6 (Version None)
Quarter: 2007Q3

REPORT INFORMATION
  Report Type: 
  Country: None (occurrence: None)
  Receive Date: 20070719
  Receipt Date: 20070711
  Transmission Date: 20080115
  Serious: Yes (Life-Threatening, Hospitalization)
  Sender: FDA-Public Use
  Company Number: FR-BRISTOL-MYERS SQUIBB COMPANY-13841580

PATIENT
  Age: 53 Year
  Sex: Female
  Weight: 72 kg

DRUGS (9)
  1. CYCLOPHOSPHAMIDE [Suspect]
     Indication: BREAST CANCER
     Dates: start: 20040510, end: 20040510
  2. EPIRUBICIN [Suspect]
     Indication: BREAST CANCER
     Dates: start: 20040510, end: 20040510
  3. FLUOROURACIL [Suspect]
     Indication: BREAST CANCER
     Dates: start: 20040510, end: 20040510
  4. CARDENSIEL [Concomitant]
     Dates: start: 20061221
  5. AROMASIN [Concomitant]
     Dates: start: 20060601, end: 20070620
  6. RAMIPRIL [Concomitant]
     Dates: start: 20030101
  7. ALDALIX [Concomitant]
     Dates: end: 20070202
  8. LYSIN ACETYLSALICYLATE [Concomitant]
  9. FUROSEMIDE [Concomitant]
     Dates: start: 20070203

REACTIONS (1)
  - CARDIOMYOPATHY [None]
